FAERS Safety Report 24822190 (Version 1)
Quarter: 2025Q1

REPORT INFORMATION
  Report Type: Spontaneous
  Country: US (occurrence: US)
  Receive Date: 20250108
  Receipt Date: 20250108
  Transmission Date: 20250409
  Serious: No
  Sender: THEA PHARMA INC.
  Company Number: US-THEA-2024002335

PATIENT
  Age: 84 Year
  Sex: Female

DRUGS (1)
  1. IYUZEH [Suspect]
     Active Substance: LATANOPROST
     Indication: Glaucoma
     Dosage: PER EYE, AT NIGHT
     Route: 047

REACTIONS (1)
  - Vision blurred [Recovering/Resolving]

NARRATIVE: CASE EVENT DATE: 20240701
